FAERS Safety Report 5044399-4 (Version None)
Quarter: 2006Q2

REPORT INFORMATION
  Report Type: 
  Country: None (occurrence: None)
  Receive Date: 20060629
  Receipt Date: 20060616
  Transmission Date: 20061013
  Serious: Yes (Other)
  Sender: FDA-Public Use
  Company Number: 2006070633

PATIENT
  Age: 70 Year
  Sex: Male
  Weight: 48.9 kg

DRUGS (12)
  1. ZYVOX [Suspect]
     Indication: STAPHYLOCOCCAL INFECTION
     Dosage: 1200 MG (600 MG, 2 IN 1 TOTAL), ORAL
     Route: 048
     Dates: start: 20060530, end: 20060530
  2. UNASYN [Concomitant]
  3. RABEPRAZOLE SODIUM [Concomitant]
  4. AMLODIPINE [Concomitant]
  5. LOXONIN (LOXOPROFEN SODIUM) [Concomitant]
  6. LACTATED RINGER'S INJECTION (CALCIUM CHLORIDE DIHYDRATE, POTASSIUM CHL [Concomitant]
  7. SALINE MIXTURE (AMMONIUM ACETATE, CAMPHOR WATER, SODIUM CITRATE, SODIU [Concomitant]
  8. VEEN D (CALCIUM CHLORIDE DIHYDRATE, GLUCOSE, POTASSIUM CHLORIDE, SODIU [Concomitant]
  9. PRODIF (FOSFLUCONAZOLE) [Concomitant]
  10. UNASYN [Concomitant]
  11. SELBEX (TEPRENONE) [Concomitant]
  12. MAGNESIUM OXIDE [Concomitant]

REACTIONS (4)
  - CHILLS [None]
  - PYREXIA [None]
  - TREMOR [None]
  - VOMITING [None]
